FAERS Safety Report 20027809 (Version 14)
Quarter: 2022Q1

REPORT INFORMATION
  Report Type: Report from Study
  Country: GB (occurrence: GB)
  Receive Date: 20211103
  Receipt Date: 20220222
  Transmission Date: 20220423
  Serious: Yes (Life-Threatening, Hospitalization, Other)
  Sender: FDA-Public Use
  Company Number: GB-CELLTRION INC.-2021GB014739

PATIENT

DRUGS (89)
  1. RITUXIMAB [Suspect]
     Active Substance: RITUXIMAB
     Indication: Diffuse large B-cell lymphoma stage II
     Dosage: 1Q3W (REGIMEN : 1; PHARMACEUTICAL DOSE FORM: 16)
     Route: 042
     Dates: start: 20210831
  2. RITUXIMAB [Suspect]
     Active Substance: RITUXIMAB
     Indication: Diffuse large B-cell lymphoma
     Dosage: 375 MG/M2, EVERY 3 WEEKS (PHARMACEUTICAL DOSE FORM: 230)
     Route: 042
     Dates: start: 20210831
  3. RITUXIMAB [Suspect]
     Active Substance: RITUXIMAB
     Dosage: 375 MG/M2, 1Q3W (PHARMACEUTICAL DOSE FORM: 16)
     Route: 042
     Dates: start: 20210831
  4. RITUXIMAB [Suspect]
     Active Substance: RITUXIMAB
     Dosage: UNK(PHARMACEUTICAL DOSE FORM: 16)
     Dates: start: 201912, end: 202004
  5. RITUXIMAB [Suspect]
     Active Substance: RITUXIMAB
     Dosage: UNK
     Dates: start: 202008, end: 202009
  6. RITUXIMAB [Suspect]
     Active Substance: RITUXIMAB
     Dosage: 9 MG/M2, Q3W (375 MG/M2, EVERY 3 WEEKS) (PHARMACEUTICAL DOSE FORM: 16)
     Route: 042
     Dates: start: 20210831
  7. RITUXIMAB [Suspect]
     Active Substance: RITUXIMAB
     Dosage: UNK(PHARMACEUTICAL DOSE FORM: 16)
  8. RITUXIMAB [Suspect]
     Active Substance: RITUXIMAB
     Dosage: UNK, (REGIMEN : 1; PHARMACEUTICAL DOSE FORM: 16)
  9. CARBOPLATIN [Suspect]
     Active Substance: CARBOPLATIN
     Indication: Diffuse large B-cell lymphoma stage II
     Dosage: (REGIMEN : 1; PHARMACEUTICAL DOSE FORM: 16)
     Route: 042
  10. CARBOPLATIN [Suspect]
     Active Substance: CARBOPLATIN
     Indication: Diffuse large B-cell lymphoma
     Dosage: (REGIMEN : 1; PHARMACEUTICAL DOSE FORM: 16)
     Route: 042
  11. CARBOPLATIN [Suspect]
     Active Substance: CARBOPLATIN
     Dosage: (REGIMEN : 1; PHARMACEUTICAL DOSE FORM: 16)
  12. CARBOPLATIN [Suspect]
     Active Substance: CARBOPLATIN
     Dosage: (REGIMEN : 1; PHARMACEUTICAL DOSE FORM: 16)
     Route: 042
  13. CARBOPLATIN [Suspect]
     Active Substance: CARBOPLATIN
     Dosage: UNK (PHARMACEUTICAL DOSE FORM: 16)
     Route: 042
  14. CARBOPLATIN [Suspect]
     Active Substance: CARBOPLATIN
     Dosage: 750 MG, 1Q3W (EVERY 3WEEKS)  (REGIMEN: 1; PHARMACEUTICAL DOSE FORM: 16)
     Route: 042
     Dates: start: 20210901
  15. CARBOPLATIN [Suspect]
     Active Substance: CARBOPLATIN
     Dosage: 750 MG 1Q3W (PHARMACEUTICAL DOSE FORM: 16)
     Route: 042
     Dates: start: 20210901
  16. CARBOPLATIN [Suspect]
     Active Substance: CARBOPLATIN
     Dosage: 5 AUC, 750 MG 1Q3W  (PHARMACEUTICAL DOSE FORM: 16),
     Route: 042
     Dates: start: 20210901
  17. CYTARABINE [Suspect]
     Active Substance: CYTARABINE
     Indication: Diffuse large B-cell lymphoma stage II
     Dosage: Q12H (REGIMEN : 1; PHARMACEUTICAL DOSE FORM: 374)
     Route: 042
     Dates: start: 20210901, end: 20210901
  18. CYTARABINE [Suspect]
     Active Substance: CYTARABINE
     Indication: Diffuse large B-cell lymphoma
     Dosage: 2000 MG/M2 EVERY 12 HOURS (PHARMACEUTICAL DOSAGE FORM: 231)
     Route: 042
     Dates: start: 20210902
  19. CYTARABINE [Suspect]
     Active Substance: CYTARABINE
     Indication: Diffuse large B-cell lymphoma
     Dosage: Q12H (REGIMEN : 1; PHARMACEUTICAL DOSE FORM: 374)
     Route: 042
     Dates: start: 20210901, end: 20210901
  20. CYTARABINE [Suspect]
     Active Substance: CYTARABINE
     Dosage: 2000 MG/M2 BID (PHARMACEUTICAL DOSE FORM: 231)
     Route: 042
     Dates: start: 20210902
  21. CYTARABINE [Suspect]
     Active Substance: CYTARABINE
     Dosage: 2000 MG/M2, BID (PHARMACEUTICAL DOSAGE FORM: 231)
     Route: 042
     Dates: start: 20210901, end: 20210901
  22. CYTARABINE [Suspect]
     Active Substance: CYTARABINE
     Dosage: 2000 MG/M2 EVERY 12 HOURS (PHARMACEUTICAL DOSAGE FORM: 231)
     Route: 042
     Dates: start: 20210902
  23. CYTARABINE [Suspect]
     Active Substance: CYTARABINE
     Dosage: 2000 MG/M2, EVERY 12 HOURS (DOSE FORM: 231)
     Route: 042
     Dates: start: 20210901
  24. CYTARABINE [Suspect]
     Active Substance: CYTARABINE
     Dosage: 2000 MG/M2, BID (REGIMEN : 1; PHARMACEUTICAL DOSAGE FORM: 231)
     Route: 042
     Dates: start: 20210902
  25. CYTARABINE [Suspect]
     Active Substance: CYTARABINE
     Dosage: 9  MG/M2, BID (2000 MG/M2 EVERY 12 HOURS) PHARMACEUTICAL DOSE FORM: 231
     Route: 042
     Dates: start: 20210901, end: 20210901
  26. CYTARABINE [Suspect]
     Active Substance: CYTARABINE
     Dosage: 9 MG/M2, BID (2000 MG/M2 EVERY 12 HOURS) PHARMACEUTICAL DOSE FORM: 231
     Route: 042
     Dates: start: 20210902
  27. CYTARABINE [Suspect]
     Active Substance: CYTARABINE
     Dosage: REGIMEN: 1; CUMULATIVE DOSE: 4000 MG/M2; PHARMACEUTICAL DOSAGE FORM: 231
  28. CYTARABINE [Suspect]
     Active Substance: CYTARABINE
     Dosage: REGIMEN: 1; CUMULATIVE DOSE: 4000 MG/M2; PHARMACEUTICAL DOSAGE FORM: 231
  29. CYTARABINE [Suspect]
     Active Substance: CYTARABINE
     Dosage: REGIMEN : 1, 1Q2H
     Route: 042
     Dates: start: 20210901, end: 20210902
  30. DEXAMETHASONE [Suspect]
     Active Substance: DEXAMETHASONE
     Indication: Diffuse large B-cell lymphoma stage II
     Dosage: SINGLE (PHARMACEUTICAL DOSE FORM: 169)
     Route: 048
     Dates: start: 20210831, end: 20210831
  31. DEXAMETHASONE [Suspect]
     Active Substance: DEXAMETHASONE
     Indication: Diffuse large B-cell lymphoma
     Dosage: 16 MG (PHARMACEUTICAL DOSE FORM: 169)
     Route: 042
     Dates: start: 20210908
  32. DEXAMETHASONE [Suspect]
     Active Substance: DEXAMETHASONE
     Indication: Diffuse large B-cell lymphoma
     Dosage: 16 MG, SINGLE (PHARMACEUTICAL DOSAGE FORM: 169)
     Route: 042
     Dates: start: 20210908, end: 20210908
  33. DEXAMETHASONE [Suspect]
     Active Substance: DEXAMETHASONE
     Dosage: 40 MG QD (PHARMACEUTICAL DOSE: 169)
     Route: 048
     Dates: start: 20210902, end: 20210903
  34. DEXAMETHASONE [Suspect]
     Active Substance: DEXAMETHASONE
     Dosage: 40 MG, SINGLE (PHARMACEUTICAL DOSE FORM: 169)
     Route: 048
     Dates: start: 20210831, end: 20210831
  35. DEXAMETHASONE [Suspect]
     Active Substance: DEXAMETHASONE
     Dosage: 16 MG AT 15: 20 HRS (PHARMACEUTICAL DOSE FORM: 169)
     Route: 048
     Dates: start: 20210908
  36. DEXAMETHASONE [Suspect]
     Active Substance: DEXAMETHASONE
     Dosage: 16 MG (PHARMACEUTICAL DOSAGE FORM: 169)
     Route: 048
     Dates: start: 20210908
  37. DEXAMETHASONE [Suspect]
     Active Substance: DEXAMETHASONE
     Dosage: 16 MG, SINGLE (PHARMACEUTICAL DOSAGE FORM: 169)
     Route: 042
     Dates: start: 20210922, end: 20210922
  38. DEXAMETHASONE [Suspect]
     Active Substance: DEXAMETHASONE
     Dosage: 16 MG AT 15: 20 HRS (PHARMACEUTICAL DOSE FORM: 169)
     Route: 048
     Dates: start: 20210909, end: 20210911
  39. DEXAMETHASONE [Suspect]
     Active Substance: DEXAMETHASONE
     Dosage: 16 MG, QD (PHARMACEUTICAL DOSE FORM: 169)
     Route: 048
     Dates: start: 20210923, end: 20210925
  40. DEXAMETHASONE [Suspect]
     Active Substance: DEXAMETHASONE
     Dosage: 16 MG, QD (PHARMACEUTICAL DOSE FORM: 169)
     Route: 042
     Dates: start: 20210908, end: 20210908
  41. DEXAMETHASONE [Suspect]
     Active Substance: DEXAMETHASONE
     Dosage: 40 MG, QD (PHARMACEUTICAL DOSE FORM: 169)
     Route: 048
     Dates: start: 20210902, end: 20210903
  42. DEXAMETHASONE [Suspect]
     Active Substance: DEXAMETHASONE
     Dosage: 16 MG, QD (DOSE FORM: 169)
     Route: 048
     Dates: start: 20210909, end: 20210911
  43. EPCORITAMAB [Suspect]
     Active Substance: EPCORITAMAB
     Indication: Diffuse large B-cell lymphoma stage II
     Dosage: 0.16 MG, SINGLE (REGIMEN: 1; PHARMACEUTICAL DOSE FORM: 15)
     Route: 058
     Dates: start: 20210901, end: 20210901
  44. EPCORITAMAB [Suspect]
     Active Substance: EPCORITAMAB
     Indication: Diffuse large B-cell lymphoma
     Dosage: PRIMING DOSE 0.16 MG, SINGLE (PHARMACEUTICAL DOSE FORM: 231)
     Route: 058
     Dates: start: 20210901, end: 20210901
  45. EPCORITAMAB [Suspect]
     Active Substance: EPCORITAMAB
     Dosage: 0.8 MG, SINGLE (PHARMACEUTICAL DOSE FORM: 15)
     Route: 058
     Dates: start: 20210901, end: 20210901
  46. EPCORITAMAB [Suspect]
     Active Substance: EPCORITAMAB
     Dosage: 0.8 MG, SINGLE (INTERMEDIATE DOSE) (PHARMACEUTICAL DOSE FORM: 15)
     Route: 058
     Dates: start: 20210908, end: 20210908
  47. EPCORITAMAB [Suspect]
     Active Substance: EPCORITAMAB
     Dosage: 0.8 MG, SINGLE (PRIMING DOSE) (PHARMACEUTICAL DOSE FORM: 15)
     Route: 058
     Dates: start: 20210901, end: 20210901
  48. EPCORITAMAB [Suspect]
     Active Substance: EPCORITAMAB
     Dosage: 0.8 MG, SINGLE (FULL DOSE) (PHARMACEUTICAL DOSE FORM: 15)
     Route: 058
     Dates: start: 20210922
  49. EPCORITAMAB [Suspect]
     Active Substance: EPCORITAMAB
     Dosage: INTERMEDIATE DOSE 0.8 MG, SINGLE (DOSE FORM: 231)
     Route: 058
     Dates: start: 20210908, end: 20210908
  50. EPCORITAMAB [Suspect]
     Active Substance: EPCORITAMAB
     Dosage: FULL DOSE 0.8 MG, SINGLE (DOSE FORM: 231)
     Route: 058
     Dates: start: 20210922
  51. EPCORITAMAB [Suspect]
     Active Substance: EPCORITAMAB
     Dosage: 0.16 MG, SINGLE (PRIMING DOSE) (PHARMACEUTICAL DOSE FORM: 15)
     Route: 058
     Dates: start: 20210901, end: 20210901
  52. EPCORITAMAB [Suspect]
     Active Substance: EPCORITAMAB
     Dosage: PRIMING DOSE 0.16MG, SINGLE (PRIMING DOSE) (PHARMACEUTICAL DOSE FORM: 15)
     Route: 058
     Dates: start: 20210901, end: 20210901
  53. EPCORITAMAB [Suspect]
     Active Substance: EPCORITAMAB
     Dosage: INTERMEDIATE DOSE 0.8 MG, SINGLE (PHARMACEUTICAL DOSE FORM: 15)
     Route: 058
     Dates: start: 20210901, end: 20210901
  54. EPCORITAMAB [Suspect]
     Active Substance: EPCORITAMAB
     Dosage: UNK, (PHARMACEUTICAL DOSAGE FORM: 15; CUMULATIVE DOSE: 0.96 MG)
  55. EPCORITAMAB [Suspect]
     Active Substance: EPCORITAMAB
     Dosage: UNK, (PHARMACEUTICAL DOSAGE FORM: 15; CUMULATIVE DOSE: 0.96 MG)
  56. FRAGMIN [Suspect]
     Active Substance: DALTEPARIN SODIUM
     Indication: Prophylaxis
     Dosage: 5000 UNITS, QD (REGIMEN: 1; PHARMACEUTICAL DOSE FORM: 231)
     Route: 058
     Dates: start: 202107, end: 20210908
  57. FRAGMIN [Suspect]
     Active Substance: DALTEPARIN SODIUM
     Dosage: 5000 IU, 1X/DAY (DOSE FORM: 231)
     Route: 058
     Dates: start: 202107, end: 20210908
  58. FRAGMIN [Suspect]
     Active Substance: DALTEPARIN SODIUM
     Dosage: (REGIMEN: 1; PHARMACEUTICAL DOSE FORM: 231)
     Route: 058
     Dates: start: 202107, end: 20210908
  59. FRAGMIN [Suspect]
     Active Substance: DALTEPARIN SODIUM
     Dosage: UNK UNK, QD (5000 UNITS) (PHARMACEUTICAL DOSE FORM: 231)
     Route: 058
     Dates: start: 202107, end: 20210908
  60. FRAGMIN [Suspect]
     Active Substance: DALTEPARIN SODIUM
     Dosage: 25 IU, QD (5000 IU, 1X/DAY)
     Route: 058
     Dates: start: 202107, end: 20210908
  61. FRAGMIN [Suspect]
     Active Substance: DALTEPARIN SODIUM
     Dosage: 5000 UNITS, QD (PHARMACEUTICAL DOSE FORM: 231)
     Route: 058
     Dates: start: 202107, end: 20210908
  62. OXALIPLATIN [Suspect]
     Active Substance: OXALIPLATIN
     Indication: Diffuse large B-cell lymphoma
     Dosage: (REGIMEN : 1; PHARMACEUTICAL DOSE FORM: 16)
     Route: 042
  63. OXALIPLATIN [Suspect]
     Active Substance: OXALIPLATIN
     Indication: Diffuse large B-cell lymphoma stage II
     Dosage: UNK (REGIMEN : 1; PHARMACEUTICAL DOSE FORM: 16)
     Route: 042
  64. OXALIPLATIN [Suspect]
     Active Substance: OXALIPLATIN
     Dosage: UNK (DOSE FORM: 16)
     Route: 042
  65. ACYCLOVIR [Concomitant]
     Active Substance: ACYCLOVIR
     Dosage: UNK
     Dates: start: 202103
  66. CHLORPHENIRAMINE MALEATE [Concomitant]
     Active Substance: CHLORPHENIRAMINE MALEATE
     Indication: Premedication
     Dosage: UNK UNK, QD
     Route: 042
     Dates: start: 20210908, end: 20210908
  67. CHLORPHENIRAMINE MALEATE [Concomitant]
     Active Substance: CHLORPHENIRAMINE MALEATE
     Dosage: UNK
     Route: 042
     Dates: start: 20210908, end: 20210922
  68. CHLORPHENIRAMINE MALEATE [Concomitant]
     Active Substance: CHLORPHENIRAMINE MALEATE
     Dosage: UNK
     Route: 042
     Dates: start: 20210831, end: 20210908
  69. CHLORPHENIRAMINE MALEATE [Concomitant]
     Active Substance: CHLORPHENIRAMINE MALEATE
     Dosage: UNK
     Dates: start: 20210908, end: 20210908
  70. FILGRASTIM [Concomitant]
     Active Substance: FILGRASTIM
     Dosage: UNK
     Dates: start: 202104
  71. FLUOXETINE [Concomitant]
     Active Substance: FLUOXETINE HYDROCHLORIDE
     Dosage: UNK
     Dates: start: 202103
  72. FOLIC ACID [Concomitant]
     Active Substance: FOLIC ACID
     Dosage: UNK
     Dates: start: 202104
  73. LANSOPRAZOLE [Concomitant]
     Active Substance: LANSOPRAZOLE
     Dosage: UNK
     Dates: start: 202104
  74. ONDANSETRON [Concomitant]
     Active Substance: ONDANSETRON
     Dosage: UNK UNK, QD
     Route: 065
     Dates: start: 20210901, end: 20210901
  75. ONDANSETRON [Concomitant]
     Active Substance: ONDANSETRON
     Dosage: UNK
     Route: 065
     Dates: start: 20210901, end: 20210901
  76. ACETAMINOPHEN [Concomitant]
     Active Substance: ACETAMINOPHEN
     Indication: Premedication
     Dosage: UNK UNK, QD
     Route: 048
     Dates: start: 20210908, end: 20210908
  77. ACETAMINOPHEN [Concomitant]
     Active Substance: ACETAMINOPHEN
     Dosage: 1 G
     Route: 048
     Dates: start: 20210908, end: 20210908
  78. ACETAMINOPHEN [Concomitant]
     Active Substance: ACETAMINOPHEN
     Dosage: 1 G
     Route: 048
     Dates: start: 20210908, end: 20210922
  79. ACETAMINOPHEN [Concomitant]
     Active Substance: ACETAMINOPHEN
     Dosage: UNK
     Route: 048
     Dates: start: 20210908, end: 20210922
  80. ACETAMINOPHEN [Concomitant]
     Active Substance: ACETAMINOPHEN
     Dosage: 1 G
     Route: 048
     Dates: start: 20210831, end: 20210908
  81. ACETAMINOPHEN [Concomitant]
     Active Substance: ACETAMINOPHEN
     Dosage: UNK
     Route: 048
     Dates: start: 20210831
  82. ACETAMINOPHEN [Concomitant]
     Active Substance: ACETAMINOPHEN
     Dosage: UNK
     Route: 048
     Dates: start: 20210908, end: 20210908
  83. ACETAMINOPHEN [Concomitant]
     Active Substance: ACETAMINOPHEN
     Dosage: UNK
     Route: 048
     Dates: start: 20210901
  84. POSACONAZOLE [Concomitant]
     Active Substance: POSACONAZOLE
     Dosage: UNK
     Dates: start: 202107
  85. CHLORPHENIRAMINE MALEATE [Concomitant]
     Active Substance: CHLORPHENIRAMINE MALEATE
     Indication: Premedication
     Dosage: 10 MG
     Route: 042
     Dates: start: 20210908, end: 20210908
  86. CHLORPHENIRAMINE MALEATE [Concomitant]
     Active Substance: CHLORPHENIRAMINE MALEATE
     Dosage: 10 MG
     Route: 042
     Dates: start: 20210908, end: 20210922
  87. CHLORPHENIRAMINE MALEATE [Concomitant]
     Active Substance: CHLORPHENIRAMINE MALEATE
     Dosage: 10 MG
     Route: 042
     Dates: start: 20210831, end: 20210831
  88. CHLORPHENIRAMINE MALEATE [Concomitant]
     Active Substance: CHLORPHENIRAMINE MALEATE
     Dosage: 10 MG
     Route: 042
     Dates: start: 20210901, end: 20210901
  89. METOCLOPRAMIDE [Concomitant]
     Active Substance: METOCLOPRAMIDE
     Dosage: UNK
     Dates: start: 20211011

REACTIONS (6)
  - Thrombocytopenia [Recovered/Resolved]
  - Neutropenic infection [Recovered/Resolved]
  - Febrile neutropenia [Recovered/Resolved]
  - Cellulitis [Recovered/Resolved]
  - Product use issue [Unknown]
  - Disease progression [Unknown]

NARRATIVE: CASE EVENT DATE: 20210910
